FAERS Safety Report 16357672 (Version 1)
Quarter: 2019Q2

REPORT INFORMATION
  Report Type: Spontaneous
  Country: US (occurrence: US)
  Receive Date: 20190418
  Receipt Date: 20190418
  Transmission Date: 20190711
  Serious: Yes (Hospitalization)
  Sender: FDA-Public Use
  Company Number: None

PATIENT
  Age: 74 Year
  Sex: Male
  Weight: 73.9 kg

DRUGS (6)
  1. NIVOLUMAB CL [Concomitant]
  2. LOMOTIL [Concomitant]
     Active Substance: ATROPINE SULFATE\DIPHENOXYLATE HYDROCHLORIDE
  3. PREDNISONE. [Concomitant]
     Active Substance: PREDNISONE
  4. ZOLOFT [Concomitant]
     Active Substance: SERTRALINE HYDROCHLORIDE
  5. LOVENOX [Concomitant]
     Active Substance: ENOXAPARIN SODIUM
  6. APIXABAN [Suspect]
     Active Substance: APIXABAN
     Indication: PULMONARY EMBOLISM
     Route: 048
     Dates: start: 20190306, end: 20190326

REACTIONS (11)
  - Gait disturbance [None]
  - Atrioventricular block [None]
  - Condition aggravated [None]
  - Deep vein thrombosis [None]
  - Bundle branch block left [None]
  - Thrombophlebitis superficial [None]
  - Atrioventricular dissociation [None]
  - Alanine aminotransferase increased [None]
  - Aspartate aminotransferase increased [None]
  - Muscular weakness [None]
  - Myasthenia gravis [None]

NARRATIVE: CASE EVENT DATE: 20190416
